FAERS Safety Report 4920481-4 (Version None)
Quarter: 2006Q1

REPORT INFORMATION
  Report Type: 
  Country: None (occurrence: None)
  Receive Date: 20060223
  Receipt Date: 20060209
  Transmission Date: 20060701
  Serious: Yes (Hospitalization, Other)
  Sender: FDA-Public Use
  Company Number: US-MERCK-0602USA02939

PATIENT
  Age: 78 Year
  Sex: Male
  Weight: 90 kg

DRUGS (21)
  1. VIOXX [Suspect]
     Indication: ARTHRITIS
     Route: 048
     Dates: start: 20000816, end: 20020401
  2. LIPITOR [Concomitant]
     Route: 065
  3. LANOXIN [Concomitant]
     Route: 065
  4. COUMADIN [Concomitant]
     Route: 065
  5. ISOSORBIDE [Concomitant]
     Route: 065
  6. METOPROLOL TARTRATE [Concomitant]
     Route: 065
  7. ZESTRIL [Concomitant]
     Route: 065
  8. FLOMAX (MORNIFLUMATE) [Concomitant]
     Route: 065
  9. NIFEDIPINE [Concomitant]
     Route: 065
  10. NITROSTAT [Concomitant]
     Route: 065
  11. ATENOLOL [Concomitant]
     Route: 065
  12. AUGMENTIN '125' [Concomitant]
     Route: 065
  13. LEVAQUIN [Concomitant]
     Route: 065
  14. GUAIFENESIN [Concomitant]
     Route: 065
  15. ALBUTEROL [Concomitant]
     Route: 065
  16. FUROSEMIDE [Concomitant]
     Route: 065
  17. AMOXICILLIN [Concomitant]
     Route: 065
  18. BETAMETHASONE [Concomitant]
     Route: 065
  19. DOXAZOSIN MESYLATE [Concomitant]
     Route: 065
  20. PREVACID [Concomitant]
     Route: 065
  21. NAPROXEN [Concomitant]
     Route: 065

REACTIONS (13)
  - ANGINA UNSTABLE [None]
  - AORTIC VALVE INCOMPETENCE [None]
  - CARDIAC FAILURE CONGESTIVE [None]
  - CHEST PAIN [None]
  - CORONARY ARTERY DISEASE [None]
  - DYSPNOEA [None]
  - MYOCARDIAL INFARCTION [None]
  - MYOCARDIAL ISCHAEMIA [None]
  - NAUSEA [None]
  - PNEUMONIA [None]
  - RENAL FAILURE [None]
  - TRANSIENT ISCHAEMIC ATTACK [None]
  - VERTIGO [None]
